FAERS Safety Report 23445772 (Version 2)
Quarter: 2024Q1

REPORT INFORMATION
  Report Type: Report from Study
  Country: US (occurrence: US)
  Receive Date: 20240126
  Receipt Date: 20240220
  Transmission Date: 20240410
  Serious: Yes (Hospitalization)
  Sender: FDA-Public Use
  Company Number: US-TAIHOP-2024-000608

PATIENT
  Sex: Male

DRUGS (1)
  1. LONSURF [Suspect]
     Active Substance: TIPIRACIL HYDROCHLORIDE\TRIFLURIDINE
     Indication: Oesophageal carcinoma
     Dosage: FORM STRENGTHS: 15 MG AND 20 MG; CURRENT CYCLE UNKNOWN
     Route: 048
     Dates: start: 20231219

REACTIONS (4)
  - Lactic acidosis [Not Recovered/Not Resolved]
  - Sepsis [Not Recovered/Not Resolved]
  - Inappropriate schedule of product administration [Unknown]
  - Disease progression [Unknown]
